FAERS Safety Report 23032048 (Version 2)
Quarter: 2024Q1

REPORT INFORMATION
  Report Type: Spontaneous
  Country: PL (occurrence: PL)
  Receive Date: 20231005
  Receipt Date: 20240130
  Transmission Date: 20240410
  Serious: Yes (Death, Life-Threatening, Other)
  Sender: FDA-Public Use
  Company Number: PL-SANDOZ-SDZ2023PL033384

PATIENT
  Age: 49 Year
  Sex: Male

DRUGS (64)
  1. BENDAMUSTINE [Suspect]
     Active Substance: BENDAMUSTINE
     Indication: Diffuse large B-cell lymphoma
     Dosage: UNK
     Route: 065
     Dates: start: 20220916, end: 20220918
  2. BENDAMUSTINE [Suspect]
     Active Substance: BENDAMUSTINE
     Dosage: UNK
     Route: 065
     Dates: start: 20221007, end: 20221008
  3. BENDAMUSTINE [Suspect]
     Active Substance: BENDAMUSTINE
     Dosage: UNK
     Route: 065
     Dates: start: 20221127, end: 20221128
  4. DEXAMETHASONE [Suspect]
     Active Substance: DEXAMETHASONE
     Indication: Diffuse large B-cell lymphoma
     Dosage: UNK
     Route: 065
     Dates: start: 20220607, end: 20220609
  5. DEXAMETHASONE [Suspect]
     Active Substance: DEXAMETHASONE
     Dosage: UNK
     Route: 065
     Dates: start: 20220702, end: 20220704
  6. POLATUZUMAB VEDOTIN [Suspect]
     Active Substance: POLATUZUMAB VEDOTIN
     Indication: Diffuse large B-cell lymphoma
     Dosage: UNK
     Route: 065
  7. KYMRIAH [Suspect]
     Active Substance: TISAGENLECLEUCEL
     Indication: Diffuse large B-cell lymphoma
     Dosage: UNK
     Route: 065
     Dates: start: 20221207
  8. DOXORUBICIN [Suspect]
     Active Substance: DOXORUBICIN
     Indication: Diffuse large B-cell lymphoma
     Dosage: UNK,1ST CYCLE
     Route: 065
     Dates: start: 20201215, end: 20201218
  9. DOXORUBICIN [Suspect]
     Active Substance: DOXORUBICIN
     Dosage: UNK, 2ND CYCLE
     Route: 065
     Dates: start: 20210105, end: 20210106
  10. DOXORUBICIN [Suspect]
     Active Substance: DOXORUBICIN
     Dosage: UNK,3RD CYCLE
     Route: 065
     Dates: start: 20210129, end: 20210130
  11. DOXORUBICIN [Suspect]
     Active Substance: DOXORUBICIN
     Dosage: UNK, 4TH CYCLE
     Route: 065
     Dates: start: 20210219, end: 20210220
  12. DOXORUBICIN [Suspect]
     Active Substance: DOXORUBICIN
     Dosage: UNK, 5TH CYCLE
     Route: 065
     Dates: start: 20210315, end: 20210316
  13. DOXORUBICIN [Suspect]
     Active Substance: DOXORUBICIN
     Dosage: UNK,6TH CYCLE
     Route: 065
     Dates: start: 20210406, end: 20210407
  14. DOXORUBICIN [Suspect]
     Active Substance: DOXORUBICIN
     Dosage: UNK,7TH CYCLE
     Route: 065
     Dates: start: 20210429
  15. DOXORUBICIN [Suspect]
     Active Substance: DOXORUBICIN
     Dosage: UNK, 8TH CYCLE
     Route: 065
     Dates: start: 20210520, end: 20210521
  16. RITUXIMAB [Suspect]
     Active Substance: RITUXIMAB
     Indication: Diffuse large B-cell lymphoma
     Dosage: UNK,1ST CYCLE
     Route: 065
     Dates: start: 20201215, end: 20201218
  17. RITUXIMAB [Suspect]
     Active Substance: RITUXIMAB
     Dosage: UNK,2ND CYCLE
     Route: 065
     Dates: start: 20210105, end: 20210106
  18. RITUXIMAB [Suspect]
     Active Substance: RITUXIMAB
     Dosage: UNK,3RD CYCLE
     Route: 065
     Dates: start: 20210129, end: 20210130
  19. RITUXIMAB [Suspect]
     Active Substance: RITUXIMAB
     Dosage: UNK,4TH CYCLE
     Route: 065
     Dates: start: 20210219, end: 20210220
  20. RITUXIMAB [Suspect]
     Active Substance: RITUXIMAB
     Dosage: UNK, 5TH CYCLE
     Route: 065
     Dates: start: 20210315, end: 20210316
  21. RITUXIMAB [Suspect]
     Active Substance: RITUXIMAB
     Dosage: UNK,6TH CYCLE
     Route: 065
     Dates: start: 20210406, end: 20210407
  22. RITUXIMAB [Suspect]
     Active Substance: RITUXIMAB
     Dosage: UNK,7TH CYCLE
     Route: 065
     Dates: start: 20210429
  23. RITUXIMAB [Suspect]
     Active Substance: RITUXIMAB
     Dosage: UNK,8TH CYCLE
     Route: 065
     Dates: start: 20210520, end: 20210521
  24. RITUXIMAB [Suspect]
     Active Substance: RITUXIMAB
     Dosage: UNK
     Route: 065
     Dates: start: 20220607, end: 20220609
  25. RITUXIMAB [Suspect]
     Active Substance: RITUXIMAB
     Dosage: UNK
     Route: 065
     Dates: start: 20220702, end: 20220704
  26. RITUXIMAB [Suspect]
     Active Substance: RITUXIMAB
     Dosage: UNK
     Route: 065
     Dates: start: 20220916, end: 20220918
  27. RITUXIMAB [Suspect]
     Active Substance: RITUXIMAB
     Dosage: UNK
     Route: 065
     Dates: start: 20221007, end: 20221008
  28. RITUXIMAB [Suspect]
     Active Substance: RITUXIMAB
     Dosage: UNK
     Route: 065
     Dates: start: 20221127, end: 20221129
  29. PREDNISONE [Suspect]
     Active Substance: PREDNISONE
     Indication: Diffuse large B-cell lymphoma
     Dosage: UNK,1ST CYCLE
     Route: 065
     Dates: start: 20201215, end: 20201218
  30. PREDNISONE [Suspect]
     Active Substance: PREDNISONE
     Dosage: UNK,2ND CYCLE
     Route: 065
     Dates: start: 20210105, end: 20210106
  31. PREDNISONE [Suspect]
     Active Substance: PREDNISONE
     Dosage: UNK, 3RD CYCLE
     Route: 065
     Dates: start: 20210129, end: 20210130
  32. PREDNISONE [Suspect]
     Active Substance: PREDNISONE
     Dosage: UNK,4TH CYCLE
     Route: 065
     Dates: start: 20210219, end: 20210220
  33. PREDNISONE [Suspect]
     Active Substance: PREDNISONE
     Dosage: UNK,5TH CYCLE
     Route: 065
     Dates: start: 20210315, end: 20210316
  34. PREDNISONE [Suspect]
     Active Substance: PREDNISONE
     Dosage: UNK,6TH CYCLE
     Route: 065
     Dates: start: 20210406, end: 20210407
  35. PREDNISONE [Suspect]
     Active Substance: PREDNISONE
     Dosage: UNK,7TH CYCLE
     Route: 065
     Dates: start: 20210429
  36. PREDNISONE [Suspect]
     Active Substance: PREDNISONE
     Dosage: UNK,8TH CYCLE
     Route: 065
     Dates: start: 20210520, end: 20210521
  37. CISPLATIN [Suspect]
     Active Substance: CISPLATIN
     Indication: Diffuse large B-cell lymphoma
     Dosage: UNK
     Route: 065
     Dates: start: 20220607, end: 20220609
  38. CISPLATIN [Suspect]
     Active Substance: CISPLATIN
     Dosage: UNK
     Route: 065
     Dates: start: 20220702, end: 20220704
  39. VINCRISTINE [Suspect]
     Active Substance: VINCRISTINE
     Indication: Diffuse large B-cell lymphoma
     Dosage: UNK,1ST CYCLE
     Route: 065
     Dates: start: 20201215, end: 20201218
  40. VINCRISTINE [Suspect]
     Active Substance: VINCRISTINE
     Dosage: UNK, 2ND CYCLE
     Route: 065
     Dates: start: 20210105, end: 20210106
  41. VINCRISTINE [Suspect]
     Active Substance: VINCRISTINE
     Dosage: UNK,3RD CYCLE
     Route: 065
     Dates: start: 20210129, end: 20210130
  42. VINCRISTINE [Suspect]
     Active Substance: VINCRISTINE
     Dosage: UNK,4THC CYCLE
     Route: 065
     Dates: start: 20210219, end: 20210220
  43. VINCRISTINE [Suspect]
     Active Substance: VINCRISTINE
     Dosage: UNK,5TH CYCLE
     Route: 065
     Dates: start: 20210315, end: 20210316
  44. VINCRISTINE [Suspect]
     Active Substance: VINCRISTINE
     Dosage: UNK,6TH CYCLE
     Route: 065
     Dates: start: 20210406, end: 20210407
  45. VINCRISTINE [Suspect]
     Active Substance: VINCRISTINE
     Dosage: UNK, 7TH CYCLE
     Route: 065
     Dates: start: 20210429
  46. VINCRISTINE [Suspect]
     Active Substance: VINCRISTINE
     Dosage: UNK,8TH CYCLE
     Route: 065
     Dates: start: 20210520, end: 20210521
  47. CYTARABINE [Suspect]
     Active Substance: CYTARABINE
     Indication: Diffuse large B-cell lymphoma
     Dosage: UNK
     Route: 065
     Dates: start: 20220607, end: 20220609
  48. CYTARABINE [Suspect]
     Active Substance: CYTARABINE
     Dosage: UNK
     Route: 065
     Dates: start: 20220702, end: 20220704
  49. CYCLOPHOSPHAMIDE [Suspect]
     Active Substance: CYCLOPHOSPHAMIDE
     Indication: Diffuse large B-cell lymphoma
     Dosage: UNK,1ST CYCLE
     Route: 065
     Dates: start: 20201215, end: 20201218
  50. CYCLOPHOSPHAMIDE [Suspect]
     Active Substance: CYCLOPHOSPHAMIDE
     Dosage: UNK,2ND CYCLE
     Route: 065
     Dates: start: 20210105, end: 20210106
  51. CYCLOPHOSPHAMIDE [Suspect]
     Active Substance: CYCLOPHOSPHAMIDE
     Dosage: UNK,3RD CYCLE
     Route: 065
     Dates: start: 20210129, end: 20210130
  52. CYCLOPHOSPHAMIDE [Suspect]
     Active Substance: CYCLOPHOSPHAMIDE
     Dosage: UNK,4TH CYCLE
     Route: 065
     Dates: start: 20210219, end: 20210220
  53. CYCLOPHOSPHAMIDE [Suspect]
     Active Substance: CYCLOPHOSPHAMIDE
     Dosage: UNK, 5TH CYCLE
     Route: 065
     Dates: start: 20210315, end: 20210316
  54. CYCLOPHOSPHAMIDE [Suspect]
     Active Substance: CYCLOPHOSPHAMIDE
     Dosage: UNK,6TH CYCLE
     Route: 065
     Dates: start: 20210406, end: 20210407
  55. CYCLOPHOSPHAMIDE [Suspect]
     Active Substance: CYCLOPHOSPHAMIDE
     Dosage: UNK,7TH CYCLE
     Route: 065
     Dates: start: 20210429
  56. CYCLOPHOSPHAMIDE [Suspect]
     Active Substance: CYCLOPHOSPHAMIDE
     Dosage: UNK, 8TH CYCLE
     Route: 065
     Dates: start: 20210520, end: 20210521
  57. METHOTREXATE [Suspect]
     Active Substance: METHOTREXATE
     Indication: Diffuse large B-cell lymphoma
     Dosage: UNK, 1ST CYCLE
     Route: 065
     Dates: start: 20201215, end: 20201218
  58. METHOTREXATE [Suspect]
     Active Substance: METHOTREXATE
     Dosage: UNK, 2ND CYCLE
     Route: 065
     Dates: start: 20210105, end: 20210106
  59. METHOTREXATE [Suspect]
     Active Substance: METHOTREXATE
     Dosage: UNK, 3RD CYCLE
     Route: 065
     Dates: start: 20210129, end: 20210130
  60. METHOTREXATE [Suspect]
     Active Substance: METHOTREXATE
     Dosage: UNK, 4TH CYCLE
     Route: 065
     Dates: start: 20210219, end: 20210220
  61. METHOTREXATE [Suspect]
     Active Substance: METHOTREXATE
     Dosage: UNK, 5TH CYCLE
     Route: 065
     Dates: start: 20210315, end: 20210316
  62. METHOTREXATE [Suspect]
     Active Substance: METHOTREXATE
     Dosage: UNK, 7TH CYCLE
     Route: 065
     Dates: start: 20210429
  63. METHOTREXATE [Suspect]
     Active Substance: METHOTREXATE
     Dosage: UNK, 6TH CYCLE
     Route: 065
     Dates: start: 20210406, end: 20210407
  64. METHOTREXATE [Suspect]
     Active Substance: METHOTREXATE
     Dosage: UNK,8TH CYCLE
     Route: 065
     Dates: start: 20210520, end: 20210521

REACTIONS (4)
  - Death [Fatal]
  - Thrombocytopenia [Unknown]
  - Immune effector cell-associated neurotoxicity syndrome [Recovered/Resolved]
  - Diffuse large B-cell lymphoma recurrent [Unknown]

NARRATIVE: CASE EVENT DATE: 20230408
